FAERS Safety Report 16116670 (Version 1)
Quarter: 2019Q1

REPORT INFORMATION
  Report Type: Spontaneous
  Country: US (occurrence: US)
  Receive Date: 20190221
  Receipt Date: 20190221
  Transmission Date: 20190418
  Serious: Yes (Disabling)
  Sender: FDA-Public Use
  Company Number: None

PATIENT
  Age: 85 Year
  Sex: Female
  Weight: 70.31 kg

DRUGS (21)
  1. ZINC. [Concomitant]
     Active Substance: ZINC
  2. BOSWELLIA + TART CHERRY [Concomitant]
  3. CRANBERRY. [Concomitant]
     Active Substance: CRANBERRY
  4. PROBIOTICS - ULTIMATE 16 STRAIN [Concomitant]
  5. KELP [Concomitant]
     Active Substance: KELP
  6. BLUE LEAF EXTRACT [Concomitant]
  7. N-ACETYL CYSTEINE [Concomitant]
     Active Substance: ACETYLCYSTEINE
  8. SEMSC SELENIUM [Concomitant]
  9. LOSARTAN + HCTZ [Concomitant]
     Active Substance: HYDROCHLOROTHIAZIDE\LOSARTAN POTASSIUM
  10. VISION [Concomitant]
  11. AVOCADO OIL [Concomitant]
     Active Substance: AVOCADO OIL
  12. HA [Concomitant]
  13. K+ ASPARTATE [Concomitant]
  14. MULTI VITAMINS + MINERAL [Concomitant]
  15. AMLA FRUIT [Concomitant]
  16. OMEGA Q [Concomitant]
  17. MAGNESIUM [Concomitant]
     Active Substance: MAGNESIUM
  18. AMLODIPINE BESYLATE. [Suspect]
     Active Substance: AMLODIPINE BESYLATE
     Indication: BLOOD PRESSURE MEASUREMENT
     Dosage: ?          QUANTITY:2.5 MG MILLIGRAM(S);?
     Route: 048
     Dates: start: 20180731, end: 20190122
  19. VITAMIN D [Concomitant]
     Active Substance: CHOLECALCIFEROL
  20. TURMERIC [Concomitant]
     Active Substance: HERBALS\TURMERIC
  21. VITAMIN C [Concomitant]
     Active Substance: ASCORBIC ACID

REACTIONS (5)
  - Abdominal discomfort [None]
  - Fatigue [None]
  - Peripheral swelling [None]
  - Abnormal faeces [None]
  - Synovial cyst [None]

NARRATIVE: CASE EVENT DATE: 20180807
